FAERS Safety Report 15598447 (Version 1)
Quarter: 2018Q4

REPORT INFORMATION
  Report Type: Spontaneous
  Country: FR (occurrence: FR)
  Receive Date: 20181108
  Receipt Date: 20181108
  Transmission Date: 20190205
  Serious: Yes (Other)
  Sender: FDA-Public Use
  Company Number: FR-MYLANLABS-2018M1073641

PATIENT
  Age: 41 Year
  Sex: Male
  Weight: 73 kg

DRUGS (2)
  1. METHYLPHENIDATE MYLAN 54 MG DEPOTTABLETIT [Suspect]
     Active Substance: METHYLPHENIDATE HYDROCHLORIDE
     Indication: NARCOLEPSY
     Dosage: 54 MG, QD
     Route: 048
     Dates: start: 20180907, end: 20180926
  2. METHYLPHENIDATE MYLAN 18 MG DEPOTTABLETIT [Suspect]
     Active Substance: METHYLPHENIDATE HYDROCHLORIDE
     Indication: NARCOLEPSY
     Dosage: 18 MG, QD
     Route: 048
     Dates: start: 20180907, end: 20180926

REACTIONS (6)
  - Heart rate increased [Recovered/Resolved]
  - Disturbance in attention [Recovered/Resolved]
  - Drug ineffective for unapproved indication [Recovered/Resolved]
  - Chest pain [Recovered/Resolved]
  - Discomfort [Recovered/Resolved]
  - Somnolence [Recovered/Resolved]

NARRATIVE: CASE EVENT DATE: 20180907
